FAERS Safety Report 22297625 (Version 1)
Quarter: 2023Q2

REPORT INFORMATION
  Report Type: Other
  Country: EG (occurrence: EG)
  Receive Date: 20230509
  Receipt Date: 20230509
  Transmission Date: 20230722
  Serious: Yes (Other)
  Sender: FDA-Public Use
  Company Number: EG-002147023-NVSC2023EG100137

PATIENT
  Age: 73 Year
  Sex: Male

DRUGS (8)
  1. LUCENTIS [Suspect]
     Active Substance: RANIBIZUMAB
     Indication: Diabetic retinal oedema
     Dosage: UNK (IN RIGHT EYE)
     Route: 050
     Dates: start: 20220909, end: 20230312
  2. LANTUS [Concomitant]
     Active Substance: INSULIN GLARGINE
     Indication: Diabetes mellitus
     Dosage: 15 IU, QD AT 10 PM (NIGHT) (STARTED SINCE ONE YEAR AGO)
  3. NOVORAPID [Concomitant]
     Active Substance: INSULIN ASPART
     Indication: Diabetes mellitus
     Dosage: 12 IU, BID (STARTED SINCE ONE YEAR AGO) (5 IU IN MORNING BEFORE BREAKFAST AND 78 IU BEFORE LAUNCH DA
  4. GLUCOPHAGE [Concomitant]
     Active Substance: METFORMIN HYDROCHLORIDE
     Indication: Diabetes mellitus
     Dosage: 1 DOSAGE FORM, BID (500 OR 1000 MG STARTED SINCE MANY YEARS AGO AND STOPPED ONE YEAR AGO) (ONE TAB B
  5. AMARYL [Concomitant]
     Active Substance: GLIMEPIRIDE
     Indication: Diabetes mellitus
     Dosage: 1 DOSAGE FORM, QD (STARTED SINCE MANY YEARS AGO AND STOPPED ONE YEAR AGO) (ONE TAB BEFORE LAUNCH ONC
  6. GLICLAZIDE [Concomitant]
     Active Substance: GLICLAZIDE
     Indication: Diabetes mellitus
     Dosage: 1 DOSAGE FORM, QD (STARTED SINCE MANY YEARS AGO AND STOPPED ONE YEAR AGO) ( ONE TAB BEFORE LAUNCH ON
  7. ATACAND [Concomitant]
     Active Substance: CANDESARTAN CILEXETIL
     Indication: Hypertension
     Dosage: 1 DOSAGE FORM, QD (STARTED SINCE LONG TIME AGO) (ONE TAB AT AFTERNOON DAILY)
  8. BISOPROLOL FUMARATE [Concomitant]
     Active Substance: BISOPROLOL FUMARATE
     Indication: Hypertension
     Dosage: 1 DOSAGE FORM, QD (STARTED SINCE LONG TIME AGO) (ONE TAB BEFORE MEALS DAILY)

REACTIONS (3)
  - Visual impairment [Not Recovered/Not Resolved]
  - Eye opacity [Not Recovered/Not Resolved]
  - Macular oedema [Not Recovered/Not Resolved]

NARRATIVE: CASE EVENT DATE: 20230101
